APPROVED DRUG PRODUCT: PROZAC
Active Ingredient: FLUOXETINE HYDROCHLORIDE
Strength: EQ 40MG BASE
Dosage Form/Route: CAPSULE;ORAL
Application: N018936 | Product #003 | TE Code: AB
Applicant: ELI LILLY AND CO
Approved: Jun 15, 1999 | RLD: Yes | RS: Yes | Type: RX